FAERS Safety Report 15752708 (Version 2)
Quarter: 2019Q1

REPORT INFORMATION
  Report Type: Spontaneous
  Country: JP (occurrence: JP)
  Receive Date: 20181221
  Receipt Date: 20190123
  Transmission Date: 20190417
  Serious: Yes (Hospitalization, Other)
  Sender: FDA-Public Use
  Company Number: JP-GLAXOSMITHKLINE-JP2018JPN227938

PATIENT
  Age: 36 Year
  Sex: Female

DRUGS (1)
  1. ZOVIRAX [Suspect]
     Active Substance: ACYCLOVIR
     Indication: HERPES ZOSTER
     Dosage: UNK
     Route: 041

REACTIONS (8)
  - Nephropathy toxic [Recovering/Resolving]
  - Depressed level of consciousness [Recovering/Resolving]
  - Stevens-Johnson syndrome [Unknown]
  - Erythema multiforme [Unknown]
  - Nephrosclerosis [Unknown]
  - Diabetic ketoacidosis [Unknown]
  - Ocular hyperaemia [Recovering/Resolving]
  - Lip erosion [Recovering/Resolving]
